FAERS Safety Report 6077486-2 (Version None)
Quarter: 2009Q1

REPORT INFORMATION
  Report Type: 
  Country: None (occurrence: None)
  Receive Date: 20090213
  Receipt Date: 20081217
  Transmission Date: 20090719
  Serious: No
  Sender: FDA-Public Use
  Company Number: A0761500A

PATIENT
  Sex: Female

DRUGS (3)
  1. TREXIMET [Suspect]
     Indication: MIGRAINE
     Route: 048
     Dates: start: 20081208
  2. NAMENDA [Suspect]
     Indication: MIGRAINE
     Dosage: 5MG PER DAY
     Route: 048
     Dates: start: 20081208
  3. KLONOPIN [Concomitant]

REACTIONS (5)
  - AGITATION [None]
  - CRYING [None]
  - DRUG INTERACTION [None]
  - PALPITATIONS [None]
  - TREMOR [None]
